FAERS Safety Report 4479520-X (Version None)
Quarter: 2004Q4

REPORT INFORMATION
  Report Type: 
  Country: None (occurrence: None)
  Receive Date: 20041015
  Receipt Date: 20041004
  Transmission Date: 20050328
  Serious: Yes (Other)
  Sender: FDA-Public Use
  Company Number: 2004US001194

PATIENT
  Age: 5 Year
  Sex: Male

DRUGS (3)
  1. PROGRAF [Suspect]
     Indication: NEPHROTIC SYNDROME
     Dosage: 2.50 MG, BID, ORAL
     Route: 048
  2. CYCLOSPORINE [Suspect]
     Indication: NEPHROTIC SYNDROME
     Dosage: 130.00 MG, BID, ORAL
     Route: 048
  3. PREDNISONE [Suspect]
     Indication: NEPHROTIC SYNDROME

REACTIONS (2)
  - ACUTE LYMPHOCYTIC LEUKAEMIA [None]
  - NAUSEA [None]
